FAERS Safety Report 21136836 (Version 1)
Quarter: 2022Q3

REPORT INFORMATION
  Report Type: Report from Study
  Country: IT (occurrence: IT)
  Receive Date: 20220727
  Receipt Date: 20220727
  Transmission Date: 20221026
  Serious: Yes (Hospitalization, Other)
  Sender: FDA-Public Use
  Company Number: None

PATIENT
  Age: 48 Year
  Sex: Female

DRUGS (3)
  1. LORAZEPAM [Suspect]
     Active Substance: LORAZEPAM
     Indication: Product used for unknown indication
     Dosage: 2.5 MILLIGRAM (2.5 MG 2 BOXES OF 20 TABLETS)
     Route: 048
     Dates: start: 20220609, end: 20220609
  2. DIAZEPAM [Suspect]
     Active Substance: DIAZEPAM
     Indication: Product used for unknown indication
     Dosage: DROPS 5 MG/ML 2 BOTTLES
     Route: 048
     Dates: start: 20220609, end: 20220609
  3. FLURAZEPAM HYDROCHLORIDE [Suspect]
     Active Substance: FLURAZEPAM HYDROCHLORIDE
     Indication: Product used for unknown indication
     Dosage: 15 MILLIGRAM (FLUNOX 15 MG 2 BOXES OF 20 TABLETS)
     Route: 048
     Dates: start: 20220609, end: 20220609

REACTIONS (3)
  - Sopor [Recovering/Resolving]
  - Toxicity to various agents [Recovering/Resolving]
  - Drug abuse [Unknown]

NARRATIVE: CASE EVENT DATE: 20220609
